FAERS Safety Report 15191882 (Version 1)
Quarter: 2018Q3

REPORT INFORMATION
  Report Type: Spontaneous
  Country: NL (occurrence: NL)
  Receive Date: 20180724
  Receipt Date: 20180724
  Transmission Date: 20181010
  Serious: Yes (Other)
  Sender: FDA-Public Use
  Company Number: PHHY2018NL047543

PATIENT
  Age: 92 Year
  Sex: Male

DRUGS (2)
  1. AMOXICILLIN?CLAVULANIC ACID [Suspect]
     Active Substance: AMOXICILLIN\CLAVULANIC ACID
     Dosage: 1 DF, TID
     Route: 048
     Dates: start: 20180311
  2. AMOXICILLIN?CLAVULANIC ACID [Suspect]
     Active Substance: AMOXICILLIN\CLAVULANIC ACID
     Indication: PNEUMONIA
     Dosage: 1 DF, TID
     Route: 048
     Dates: start: 20180228

REACTIONS (2)
  - Faeces discoloured [Unknown]
  - Diarrhoea [Unknown]
